FAERS Safety Report 8907016 (Version 1)
Quarter: 2012Q4

REPORT INFORMATION
  Report Type: 
  Country: US (occurrence: US)
  Receive Date: 20121114
  Receipt Date: 20121114
  Transmission Date: 20130627
  Serious: Yes (Other)
  Sender: FDA-Public Use
  Company Number: PHEH2012US022444

PATIENT
  Age: 77 Year
  Sex: Male
  Weight: 113.38 kg

DRUGS (1)
  1. GLEEVEC [Suspect]
     Dosage: 400 mg daily
     Route: 048
     Dates: end: 201203

REACTIONS (2)
  - Aortic stenosis [Unknown]
  - Fluid retention [Unknown]
